FAERS Safety Report 19755783 (Version 1)
Quarter: 2021Q3

REPORT INFORMATION
  Report Type: Other
  Country: FR (occurrence: FR)
  Receive Date: 20210827
  Receipt Date: 20210827
  Transmission Date: 20211014
  Serious: Yes (Hospitalization)
  Sender: FDA-Public Use
  Company Number: FR-HARMONY BIOSCIENCES-2021HMY01589

PATIENT
  Sex: Female

DRUGS (2)
  1. SPIKEVAX [Suspect]
     Active Substance: CX-024414
     Indication: COVID-19 IMMUNISATION
  2. WAKIX [Suspect]
     Active Substance: PITOLISANT HYDROCHLORIDE
     Indication: PRODUCT USED FOR UNKNOWN INDICATION

REACTIONS (2)
  - Pericarditis [Unknown]
  - Hepatic function abnormal [Unknown]
